FAERS Safety Report 23699146 (Version 1)
Quarter: 2024Q2

REPORT INFORMATION
  Report Type: Spontaneous
  Country: DE (occurrence: DE)
  Receive Date: 20240402
  Receipt Date: 20240402
  Transmission Date: 20240716
  Serious: Yes (Death)
  Sender: FDA-Public Use
  Company Number: None

PATIENT
  Age: 41 Year
  Sex: Male
  Weight: 80 kg

DRUGS (3)
  1. MIRTAZAPINE [Suspect]
     Active Substance: MIRTAZAPINE
     Indication: Sleep disorder
     Dosage: 1 DOSAGE FORM, QD (0-0.0-1 TAKEN INDEPENDENTLY FOR 1-2 WEEKS WITHOUT MEDICAL ADVICE)
     Route: 048
     Dates: start: 2021, end: 20210215
  2. MIRTAZAPINE [Suspect]
     Active Substance: MIRTAZAPINE
     Indication: Thinking abnormal
  3. MIRTAZAPINE [Suspect]
     Active Substance: MIRTAZAPINE
     Indication: Depressed mood

REACTIONS (2)
  - Completed suicide [Fatal]
  - Product communication issue [Unknown]

NARRATIVE: CASE EVENT DATE: 20210215
